FAERS Safety Report 4936961-1 (Version None)
Quarter: 2006Q1

REPORT INFORMATION
  Report Type: 
  Country: None (occurrence: None)
  Receive Date: 20060307
  Receipt Date: 20060227
  Transmission Date: 20060701
  Serious: Yes (Death, Hospitalization)
  Sender: FDA-Public Use
  Company Number: US-MERCK-0603USA00021

PATIENT
  Age: 53 Year
  Sex: Male

DRUGS (2)
  1. VIOXX [Suspect]
     Route: 048
  2. CELEBREX [Concomitant]
     Route: 065

REACTIONS (3)
  - AORTIC ANEURYSM [None]
  - DEATH [None]
  - MYOCARDIAL INFARCTION [None]
